FAERS Safety Report 18911207 (Version 1)
Quarter: 2021Q1

REPORT INFORMATION
  Report Type: Spontaneous
  Country: US (occurrence: US)
  Receive Date: 20210218
  Receipt Date: 20210218
  Transmission Date: 20210420
  Serious: No
  Sender: FDA-Public Use
  Company Number: US-BAXTER-2021BAX003133

PATIENT
  Sex: Female
  Weight: 77.18 kg

DRUGS (3)
  1. VITAMINS [Concomitant]
     Active Substance: VITAMINS
     Indication: PRODUCT USED FOR UNKNOWN INDICATION
     Route: 065
  2. CIPROFLOXACIN INJECTION WITH 5% DEXTROSE INJECTION, USP [Suspect]
     Active Substance: CIPROFLOXACIN
     Indication: PRODUCT USED FOR UNKNOWN INDICATION
     Route: 065
  3. PRALUENT [Concomitant]
     Active Substance: ALIROCUMAB
     Indication: BLOOD CHOLESTEROL INCREASED
     Dosage: ONE INJECTION TWICE MONTHLY
     Route: 065

REACTIONS (2)
  - Drug hypersensitivity [Unknown]
  - Nerve injury [Unknown]
